FAERS Safety Report 20802250 (Version 1)
Quarter: 2022Q2

REPORT INFORMATION
  Report Type: Spontaneous
  Country: US (occurrence: US)
  Receive Date: 20220509
  Receipt Date: 20220509
  Transmission Date: 20220721
  Serious: Yes (Hospitalization, Other)
  Sender: FDA-Public Use
  Company Number: US-MICRO LABS LIMITED-ML2022-01964

PATIENT
  Age: 33 Year
  Sex: Male
  Weight: 74 kg

DRUGS (4)
  1. DIPHENHYDRAMINE HYDROCHLORIDE [Suspect]
     Active Substance: DIPHENHYDRAMINE HYDROCHLORIDE
     Indication: Anaphylactic reaction
     Route: 048
  2. RANITIDINE [Suspect]
     Active Substance: RANITIDINE
     Indication: Anaphylactic reaction
  3. LORATADINE [Suspect]
     Active Substance: LORATADINE
     Indication: Anaphylactic reaction
  4. PEGVALIASE [Concomitant]
     Active Substance: PEGVALIASE
     Indication: Phenylketonuria

REACTIONS (1)
  - Drug ineffective [Recovered/Resolved]
